FAERS Safety Report 6295556-0 (Version None)
Quarter: 2009Q3

REPORT INFORMATION
  Report Type: 
  Country: None (occurrence: None)
  Receive Date: 20090731
  Receipt Date: 20090727
  Transmission Date: 20100115
  Serious: Yes (Hospitalization, Other)
  Sender: FDA-Public Use
  Company Number: 2009UF0153FU1

PATIENT
  Age: 13 Month
  Sex: Female
  Weight: 9.0719 kg

DRUGS (1)
  1. ULESFIA [Suspect]
     Indication: LICE INFESTATION
     Dosage: DAILY
     Dates: start: 20090708, end: 20090715

REACTIONS (1)
  - ACCIDENTAL DRUG INTAKE BY CHILD [None]
